FAERS Safety Report 4839060-2 (Version None)
Quarter: 2005Q4

REPORT INFORMATION
  Report Type: 
  Country: None (occurrence: None)
  Receive Date: 20051128
  Receipt Date: 20051128
  Transmission Date: 20060501
  Serious: No
  Sender: FDA-Public Use
  Company Number: None

PATIENT
  Age: 83 Year
  Sex: Male
  Weight: 72.5755 kg

DRUGS (3)
  1. CARIMUNE [Suspect]
     Indication: CHRONIC INFLAMMATORY DEMYELINATING POLYRADICULONEUROPATHY
     Dosage: 48 G IV Q MONTH
     Route: 042
     Dates: start: 20051028
  2. COUMADIN [Concomitant]
  3. VITAMINS [Concomitant]

REACTIONS (6)
  - ASTHENIA [None]
  - BLOOD PRESSURE INCREASED [None]
  - BODY TEMPERATURE INCREASED [None]
  - FEELING COLD [None]
  - INFUSION RELATED REACTION [None]
  - TREMOR [None]
